FAERS Safety Report 10333101 (Version 1)
Quarter: 2014Q3

REPORT INFORMATION
  Report Type: Spontaneous
  Country: US (occurrence: US)
  Receive Date: 20140722
  Receipt Date: 20140722
  Transmission Date: 20150326
  Serious: No
  Sender: FDA-Public Use
  Company Number: US-SA-2013SA105466

PATIENT
  Age: 71 Year
  Sex: Female

DRUGS (1)
  1. AMBIEN CR [Suspect]
     Active Substance: ZOLPIDEM TARTRATE
     Dosage: START DATE - 17 YRS ON AMBIEN
     Route: 048

REACTIONS (1)
  - Sleep disorder [Not Recovered/Not Resolved]
